FAERS Safety Report 10511343 (Version 3)
Quarter: 2014Q4

REPORT INFORMATION
  Report Type: Spontaneous
  Country: GB (occurrence: None)
  Receive Date: 20141008
  Receipt Date: 20141208
  Transmission Date: 20150528
  Serious: Yes (Other)
  Sender: FDA-Public Use
  Company Number: 2014-20417

PATIENT
  Age: 84 Year
  Sex: Male
  Weight: 70 kg

DRUGS (4)
  1. SYSTANE [MACGROGOL, PROPYLENE GLYCOL] (MACROGOL, PROPYLENE GLYCOL) [Concomitant]
  2. ASPIRIN (ACETYLSALICYLIC ACID) [Concomitant]
     Active Substance: ASPIRIN
  3. EYLEA [Suspect]
     Active Substance: AFLIBERCEPT
     Indication: AGE-RELATED MACULAR DEGENERATION
     Route: 031
     Dates: start: 20140829
  4. LANOLIN, MINERAL OIL LIGHT, PETROLATUM (LANOLIN, MINERAL OIL LIGHT, PETROLATUM) [Concomitant]

REACTIONS (6)
  - Subretinal fluid [None]
  - Retinal oedema [None]
  - Visual acuity reduced [None]
  - Retinopathy [None]
  - Cystoid macular oedema [None]
  - Maculopathy [None]

NARRATIVE: CASE EVENT DATE: 2014
